FAERS Safety Report 7059623-6 (Version None)
Quarter: 2010Q4

REPORT INFORMATION
  Report Type: 
  Country: None (occurrence: None)
  Receive Date: 20101025
  Receipt Date: 20101014
  Transmission Date: 20110411
  Serious: Yes (Other)
  Sender: FDA-Public Use
  Company Number: GB-ASTRAZENECA-2010SE48759

PATIENT
  Age: 28 Year
  Sex: Male
  Weight: 88 kg

DRUGS (4)
  1. SEROQUEL [Suspect]
     Indication: PSYCHOTIC DISORDER
     Route: 048
     Dates: start: 20091212
  2. ACETAMINOPHEN AND CODEINE PHOSPHATE [Concomitant]
     Indication: PAIN
     Route: 048
  3. LANSOPRAZOLE [Concomitant]
     Indication: HYPOLIPIDAEMIA
     Route: 048
     Dates: start: 20070101
  4. PROPRANOLOL [Concomitant]
     Indication: MIGRAINE
     Route: 048
     Dates: start: 20070101

REACTIONS (1)
  - ENURESIS [None]
